FAERS Safety Report 12188943 (Version 2)
Quarter: 2016Q4

REPORT INFORMATION
  Report Type: Spontaneous
  Country: FR (occurrence: FR)
  Receive Date: 20160317
  Receipt Date: 20161025
  Transmission Date: 20170207
  Serious: Yes (Hospitalization)
  Sender: FDA-Public Use
  Company Number: FR-PFIZER INC-2016152013

PATIENT
  Age: 16 Day
  Sex: Female
  Weight: 1.1 kg

DRUGS (2)
  1. UVESTEROL [Concomitant]
     Active Substance: ASCORBIC ACID\ERGOCALCIFEROL\RETINOL\TOCOPHEROL
     Dosage: 1 DF, DAILY
     Dates: start: 20160219
  2. TRIFLUCAN [Suspect]
     Active Substance: FLUCONAZOLE
     Indication: CANDIDA INFECTION
     Dosage: 12 MG/KG, UNK
     Route: 042
     Dates: start: 20160220, end: 20160222

REACTIONS (2)
  - Seizure [Recovered/Resolved]
  - Hypocalcaemia [Unknown]

NARRATIVE: CASE EVENT DATE: 20160222
